FAERS Safety Report 5468660-4 (Version None)
Quarter: 2007Q3

REPORT INFORMATION
  Report Type: 
  Country: None (occurrence: None)
  Receive Date: 20070926
  Receipt Date: 20070802
  Transmission Date: 20080115
  Serious: Yes (Other)
  Sender: FDA-Public Use
  Company Number: US-PURDUE-USA_2007_0029220

PATIENT
  Sex: Male

DRUGS (1)
  1. OXYCONTIN [Suspect]
     Indication: PAIN
     Dates: start: 19980101, end: 20040117

REACTIONS (6)
  - AGGRESSION [None]
  - AMNESIA [None]
  - DRUG DEPENDENCE [None]
  - HOSTILITY [None]
  - MOOD SWINGS [None]
  - SUICIDAL IDEATION [None]
